FAERS Safety Report 12874471 (Version 2)
Quarter: 2016Q4

REPORT INFORMATION
  Report Type: Report from Study
  Country: US (occurrence: US)
  Receive Date: 20161021
  Receipt Date: 20161111
  Transmission Date: 20170207
  Serious: Yes (Hospitalization)
  Sender: FDA-Public Use
  Company Number: US-ACTELION-A-US2016-143998

PATIENT
  Age: 5 Year
  Sex: Female

DRUGS (9)
  1. ALBUTEROL. [Concomitant]
     Active Substance: ALBUTEROL
     Dosage: 2 PUFF, Q4HRS
     Dates: start: 20121003
  2. SILDENAFIL. [Concomitant]
     Active Substance: SILDENAFIL
     Dosage: 10 MG, TID
     Dates: start: 20121003
  3. ATROVENT [Concomitant]
     Active Substance: IPRATROPIUM BROMIDE
     Dosage: 2 PUFF, Q4HRS
     Dates: start: 20150820
  4. PREDNISONE. [Concomitant]
     Active Substance: PREDNISONE
     Dosage: 5.34 MG, UNK
     Dates: start: 20150820
  5. MELATONIN [Concomitant]
     Active Substance: MELATONIN
     Dosage: 1.5 MG, QD
  6. ASPIRIN. [Concomitant]
     Active Substance: ASPIRIN
     Dosage: 81 MG, UNK
     Dates: start: 20121003
  7. REVATIO [Concomitant]
     Active Substance: SILDENAFIL CITRATE
  8. TYLENOL [Concomitant]
     Active Substance: ACETAMINOPHEN
     Dosage: 200 MG, Q4HRS
     Dates: start: 20121003
  9. TRACLEER [Suspect]
     Active Substance: BOSENTAN
     Indication: PULMONARY HYPERTENSION
     Dosage: 15.625 MG, BID
     Route: 048
     Dates: start: 20121106

REACTIONS (1)
  - Cardiac operation [Recovered/Resolved]
